FAERS Safety Report 15734321 (Version 1)
Quarter: 2018Q4

REPORT INFORMATION
  Report Type: Spontaneous
  Country: US (occurrence: US)
  Receive Date: 20181203
  Receipt Date: 20181203
  Transmission Date: 20190205
  Serious: Yes (Other)
  Sender: FDA-Public Use
  Company Number: None

PATIENT
  Age: 25 Year
  Sex: Male
  Weight: 78 kg

DRUGS (1)
  1. CARBAMAZEPINA 200 MG. TABLET [Suspect]
     Active Substance: CARBAMAZEPINE
     Indication: AUTISM SPECTRUM DISORDER
     Dosage: ?          QUANTITY:60 TABLET(S);?
     Route: 048
     Dates: start: 20181104, end: 20181203

REACTIONS (3)
  - Anxiety [None]
  - Therapeutic response changed [None]
  - Abnormal behaviour [None]

NARRATIVE: CASE EVENT DATE: 20181127
